FAERS Safety Report 9560792 (Version 1)
Quarter: 2013Q3

REPORT INFORMATION
  Report Type: Spontaneous
  Country: US (occurrence: US)
  Receive Date: 20130927
  Receipt Date: 20130927
  Transmission Date: 20140515
  Serious: No
  Sender: FDA-Public Use
  Company Number: US-BIOGENIDEC-2013BI054115

PATIENT
  Age: 53 Year
  Sex: Female

DRUGS (12)
  1. TECFIDERA [Suspect]
     Indication: MULTIPLE SCLEROSIS
     Route: 048
     Dates: start: 20130604
  2. OMERPRAZOLE [Concomitant]
  3. VAGIFEM [Concomitant]
  4. LEVOXYL [Concomitant]
  5. CLONEZEPAM [Concomitant]
  6. TOPAMAX [Concomitant]
  7. OXYCODONE [Concomitant]
  8. PROZASIN [Concomitant]
  9. FLONASE [Concomitant]
  10. VITAMIN D [Concomitant]
  11. CYANOCOBALAMIN [Concomitant]
  12. CYMBALTA [Concomitant]

REACTIONS (2)
  - Arthralgia [Unknown]
  - Insomnia [Unknown]
